FAERS Safety Report 9063092 (Version 2)
Quarter: 2013Q1

REPORT INFORMATION
  Report Type: Spontaneous
  Country: IT (occurrence: IT)
  Receive Date: 20130213
  Receipt Date: 20130314
  Transmission Date: 20140127
  Serious: Yes (Other)
  Sender: FDA-Public Use
  Company Number: IT-JNJFOC-20130116903

PATIENT
  Age: 42 None
  Sex: Female

DRUGS (2)
  1. INVEGA [Suspect]
     Indication: PRODUCT USED FOR UNKNOWN INDICATION
     Route: 048
     Dates: start: 20130129, end: 20130129
  2. EDRONAX [Suspect]
     Indication: PRODUCT USED FOR UNKNOWN INDICATION
     Route: 048
     Dates: start: 20130129, end: 20130129

REACTIONS (4)
  - Intentional overdose [Unknown]
  - Drug abuse [Unknown]
  - Self injurious behaviour [Unknown]
  - Sopor [Unknown]
